FAERS Safety Report 11476468 (Version 1)
Quarter: 2015Q3

REPORT INFORMATION
  Report Type: Spontaneous
  Country: US (occurrence: US)
  Receive Date: 20150909
  Receipt Date: 20150909
  Transmission Date: 20151125
  Serious: No
  Sender: FDA-Public Use
  Company Number: US-JAZZ-2015-US-007553

PATIENT
  Age: 12 Year
  Sex: Male
  Weight: 39.91 kg

DRUGS (3)
  1. XYREM [Suspect]
     Active Substance: SODIUM OXYBATE
     Indication: SOMNOLENCE
     Dosage: 2.25 G, BID
     Route: 048
     Dates: start: 20150519
  2. MODAFINIL. [Concomitant]
     Active Substance: MODAFINIL
     Indication: NARCOLEPSY
     Dosage: UNK
  3. XYREM [Suspect]
     Active Substance: SODIUM OXYBATE
     Indication: NARCOLEPSY
     Dosage: 0.5 G, BID
     Route: 048
     Dates: start: 201505, end: 201505

REACTIONS (8)
  - Unevaluable event [Unknown]
  - Unevaluable event [Unknown]
  - Abnormal behaviour [Unknown]
  - Paranoia [Unknown]
  - Intentional product use issue [Unknown]
  - Feeling abnormal [Unknown]
  - Psychomotor hyperactivity [Unknown]
  - Agitation [Unknown]

NARRATIVE: CASE EVENT DATE: 201505
